FAERS Safety Report 11037475 (Version 1)
Quarter: 2015Q2

REPORT INFORMATION
  Report Type: Spontaneous
  Country: US (occurrence: US)
  Receive Date: 20150416
  Receipt Date: 20150416
  Transmission Date: 20150821
  Serious: No
  Sender: FDA-Public Use
  Company Number: US-PFIZER INC-2015125556

PATIENT
  Age: 69 Year
  Sex: Female
  Weight: 52 kg

DRUGS (2)
  1. VITAMINS /00067501/ [Concomitant]
     Active Substance: VITAMINS
  2. PREMARIN [Suspect]
     Active Substance: ESTROGENS, CONJUGATED
     Indication: ATROPHIC VULVOVAGINITIS
     Dosage: 0.5 G, 2X/WEEK
     Route: 067

REACTIONS (1)
  - Cortisol free urine increased [Not Recovered/Not Resolved]
